FAERS Safety Report 14995816 (Version 1)
Quarter: 2018Q2

REPORT INFORMATION
  Report Type: Spontaneous
  Country: US (occurrence: US)
  Receive Date: 20180611
  Receipt Date: 20180611
  Transmission Date: 20180711
  Serious: No
  Sender: FDA-Public Use
  Company Number: US-MYLANLABS-2018M1032887

PATIENT
  Sex: Female
  Weight: 93 kg

DRUGS (2)
  1. ACEBUTOLOL HYDROCHLORIDE CAPSULES, USP [Suspect]
     Active Substance: ACEBUTOLOL HYDROCHLORIDE
     Indication: HEART RATE INCREASED
     Dosage: 1 DF, QD (1 EVERY MORNING)
     Route: 048
  2. BENADRYL DYE-FREE [Concomitant]
     Indication: PRODUCT USED FOR UNKNOWN INDICATION

REACTIONS (6)
  - Localised oedema [Recovered/Resolved]
  - Face oedema [Recovered/Resolved]
  - Headache [Recovered/Resolved]
  - Allergy to chemicals [Unknown]
  - Pruritus generalised [Recovered/Resolved]
  - Throat irritation [Recovered/Resolved]
